FAERS Safety Report 24322293 (Version 1)
Quarter: 2024Q3

REPORT INFORMATION
  Report Type: Report from Study
  Country: CN (occurrence: CN)
  Receive Date: 20240916
  Receipt Date: 20240916
  Transmission Date: 20241016
  Serious: Yes (Other)
  Sender: ROCHE
  Company Number: CN-ROCHE-10000078552

PATIENT

DRUGS (5)
  1. BEVACIZUMAB [Suspect]
     Active Substance: BEVACIZUMAB
     Indication: Uterine cancer
     Route: 065
  2. BEVACIZUMAB [Suspect]
     Active Substance: BEVACIZUMAB
     Indication: Bladder cancer
  3. BEVACIZUMAB [Suspect]
     Active Substance: BEVACIZUMAB
     Indication: Small intestine carcinoma
  4. BEVACIZUMAB [Suspect]
     Active Substance: BEVACIZUMAB
     Indication: Pleural mesothelioma malignant
  5. BEVACIZUMAB [Suspect]
     Active Substance: BEVACIZUMAB
     Indication: Neoplasm malignant

REACTIONS (21)
  - White blood cell count decreased [Unknown]
  - Neutrophil count decreased [Unknown]
  - Agranulocytosis [Unknown]
  - Pyrexia [Unknown]
  - Platelet count decreased [Unknown]
  - Anaemia [Unknown]
  - Proteinuria [Unknown]
  - Peripheral sensory neuropathy [Unknown]
  - Nausea [Unknown]
  - Vomiting [Unknown]
  - Diarrhoea [Unknown]
  - Constipation [Unknown]
  - Skin reaction [Unknown]
  - Hypersensitivity [Unknown]
  - Hypertension [Unknown]
  - Haemorrhage [Unknown]
  - Thrombosis [Unknown]
  - Alopecia [Unknown]
  - Asthenia [Unknown]
  - Malaise [Unknown]
  - Off label use [Unknown]
